FAERS Safety Report 12548865 (Version 3)
Quarter: 2020Q1

REPORT INFORMATION
  Report Type: Report from Study
  Country: DZ (occurrence: DZ)
  Receive Date: 20160712
  Receipt Date: 20200219
  Transmission Date: 20200409
  Serious: Yes (Death, Hospitalization)
  Sender: FDA-Public Use
  Company Number: DZ-ELI_LILLY_AND_COMPANY-DZ201607001711

PATIENT
  Age: 69 Year
  Sex: Female
  Weight: 48 kg

DRUGS (4)
  1. CETUXIMAB. [Suspect]
     Active Substance: CETUXIMAB
     Dosage: 250 MG
     Route: 042
     Dates: end: 20160330
  2. CETUXIMAB. [Suspect]
     Active Substance: CETUXIMAB
     Indication: COLORECTAL CANCER METASTATIC
     Dosage: 500 MG, WEEKLY (1/W)
     Route: 042
     Dates: start: 20160223
  3. IRINOTECAN [Suspect]
     Active Substance: IRINOTECAN
     Indication: COLORECTAL CANCER METASTATIC
     Dosage: 180 MG, WEEKLY (1/W)
     Route: 042
     Dates: start: 20160223, end: 20160406
  4. CAPECITABINE. [Suspect]
     Active Substance: CAPECITABINE
     Indication: COLORECTAL CANCER METASTATIC
     Dosage: 2000 MG, DAILY
     Route: 048
     Dates: start: 20160223, end: 20160406

REACTIONS (2)
  - Off label use [Unknown]
  - Hepatotoxicity [Fatal]

NARRATIVE: CASE EVENT DATE: 20160406
